FAERS Safety Report 5256387-3 (Version None)
Quarter: 2007Q1

REPORT INFORMATION
  Report Type: 
  Country: None (occurrence: None)
  Receive Date: 20070306
  Receipt Date: 20070222
  Transmission Date: 20070707
  Serious: Yes (Death, Hospitalization)
  Sender: FDA-Public Use
  Company Number: CH-ROCHE-482973

PATIENT
  Age: 49 Year
  Sex: Male

DRUGS (10)
  1. CYMEVENE [Suspect]
     Indication: DRUG USE FOR UNKNOWN INDICATION
     Route: 042
     Dates: start: 20050701
  2. CYMEVENE [Suspect]
     Dosage: DOSE INCREASED
     Route: 042
  3. CYMEVENE [Suspect]
     Dosage: DOSE REDUCTION.
     Route: 042
     Dates: end: 20050725
  4. BACTRIM [Concomitant]
  5. MABTHERA [Concomitant]
  6. CIPROFLOXACIN [Concomitant]
     Dosage: DRUG NAME REPORTED AS ^CIPROFLOXACIN HEXAL^
  7. DIFLUCAN [Concomitant]
  8. PRECORTALON [Concomitant]
     Dosage: DRUG NAME REPORTED AS ^PRECORTALON AQUOSUM^
  9. SANDIMMUNE [Concomitant]
  10. AMBISOME [Concomitant]

REACTIONS (6)
  - ASPERGILLOSIS [None]
  - DIALYSIS [None]
  - ESCHERICHIA INFECTION [None]
  - GASTROINTESTINAL HAEMORRHAGE [None]
  - MULTI-ORGAN FAILURE [None]
  - RENAL FAILURE [None]
